FAERS Safety Report 14388406 (Version 2)
Quarter: 2019Q2

REPORT INFORMATION
  Report Type: Spontaneous
  Country: US (occurrence: US)
  Receive Date: 20180115
  Receipt Date: 20190613
  Transmission Date: 20190711
  Serious: Yes (Other)
  Sender: FDA-Public Use
  Company Number: US-SA-2017SA204212

PATIENT
  Age: 38 Year
  Sex: Female
  Weight: 68 kg

DRUGS (16)
  1. DOCETAXEL. [Suspect]
     Active Substance: DOCETAXEL
     Dosage: 75 MG/M2,Q3W
     Route: 051
     Dates: start: 20131003, end: 20131003
  2. NEOSAR [Concomitant]
     Active Substance: CYCLOPHOSPHAMIDE
  3. DOCETAXEL. [Suspect]
     Active Substance: DOCETAXEL
     Indication: BREAST CANCER FEMALE
     Dosage: 75 MG/M2,Q3W
     Route: 051
     Dates: start: 20130801, end: 20130801
  4. DOCETAXEL. [Suspect]
     Active Substance: DOCETAXEL
     Dosage: 75 MG/M2,Q3W
     Route: 051
     Dates: start: 20130822, end: 20130822
  5. DOCETAXEL. [Suspect]
     Active Substance: DOCETAXEL
     Dosage: 75 MG/M2,Q3W
     Route: 051
     Dates: start: 20130912, end: 20130912
  6. DOXORUBICIN [Concomitant]
     Active Substance: DOXORUBICIN
  7. DOCETAXEL. [Suspect]
     Active Substance: DOCETAXEL
     Dosage: 75 MG/M2,Q3W
     Route: 051
     Dates: start: 20131024, end: 20131024
  8. DEXAMETHASONE. [Concomitant]
     Active Substance: DEXAMETHASONE
  9. APREPITANT. [Concomitant]
     Active Substance: APREPITANT
  10. DOCETAXEL. [Suspect]
     Active Substance: DOCETAXEL
     Dosage: 75 MG/M2,Q3W
     Route: 051
     Dates: start: 20131114, end: 20131114
  11. DOXYCYCLINE HYDROCHLORIDE [Concomitant]
     Active Substance: DOXYCYCLINE HYDROCHLORIDE
  12. TAMOXIFEN [Concomitant]
     Active Substance: TAMOXIFEN
     Dosage: UNK UNK,UNK
     Route: 065
     Dates: start: 2002
  13. LETROZOLE. [Concomitant]
     Active Substance: LETROZOLE
     Dosage: UNK UNK,UNK
     Route: 065
     Dates: start: 2002
  14. ZOFRAN [Concomitant]
     Active Substance: ONDANSETRON HYDROCHLORIDE
  15. NEULASTA [Concomitant]
     Active Substance: PEGFILGRASTIM
  16. TISSUE PLASMINOGEN ACTIVATOR, RECOMBINATIVE [Concomitant]
     Active Substance: ALTEPLASE

REACTIONS (2)
  - Alopecia [Recovering/Resolving]
  - Psychological trauma [Unknown]

NARRATIVE: CASE EVENT DATE: 201308
